FAERS Safety Report 25068009 (Version 1)
Quarter: 2025Q1

REPORT INFORMATION
  Report Type: Spontaneous
  Country: FR (occurrence: FR)
  Receive Date: 20250312
  Receipt Date: 20250312
  Transmission Date: 20250409
  Serious: Yes (Other)
  Sender: MYLAN
  Company Number: None

PATIENT
  Age: 85 Year
  Sex: Female

DRUGS (28)
  1. VENLAFAXINE [Suspect]
     Active Substance: VENLAFAXINE HYDROCHLORIDE
     Indication: Depression
     Dosage: 37.5 MILLIGRAM, QD (37.5 MG)
     Dates: start: 20241104, end: 20241112
  2. VENLAFAXINE [Suspect]
     Active Substance: VENLAFAXINE HYDROCHLORIDE
     Dosage: 37.5 MILLIGRAM, QD (37.5 MG)
     Route: 048
     Dates: start: 20241104, end: 20241112
  3. VENLAFAXINE [Suspect]
     Active Substance: VENLAFAXINE HYDROCHLORIDE
     Dosage: 37.5 MILLIGRAM, QD (37.5 MG)
     Route: 048
     Dates: start: 20241104, end: 20241112
  4. VENLAFAXINE [Suspect]
     Active Substance: VENLAFAXINE HYDROCHLORIDE
     Dosage: 37.5 MILLIGRAM, QD (37.5 MG)
     Dates: start: 20241104, end: 20241112
  5. Candesartan EG [Concomitant]
     Indication: Product used for unknown indication
     Dosage: 8 MILLIGRAM, QD (SCORED TABLET)
  6. Candesartan EG [Concomitant]
     Dosage: 8 MILLIGRAM, QD (SCORED TABLET)
     Route: 048
  7. Candesartan EG [Concomitant]
     Dosage: 8 MILLIGRAM, QD (SCORED TABLET)
     Route: 048
  8. Candesartan EG [Concomitant]
     Dosage: 8 MILLIGRAM, QD (SCORED TABLET)
  9. LANSOPRAZOLE [Concomitant]
     Active Substance: LANSOPRAZOLE
     Indication: Product used for unknown indication
     Dosage: 15 MILLIGRAM, QD
  10. LANSOPRAZOLE [Concomitant]
     Active Substance: LANSOPRAZOLE
     Dosage: 15 MILLIGRAM, QD
     Route: 048
  11. LANSOPRAZOLE [Concomitant]
     Active Substance: LANSOPRAZOLE
     Dosage: 15 MILLIGRAM, QD
     Route: 048
  12. LANSOPRAZOLE [Concomitant]
     Active Substance: LANSOPRAZOLE
     Dosage: 15 MILLIGRAM, QD
  13. OXAZEPAM [Concomitant]
     Active Substance: OXAZEPAM
     Indication: Product used for unknown indication
  14. OXAZEPAM [Concomitant]
     Active Substance: OXAZEPAM
     Route: 048
  15. OXAZEPAM [Concomitant]
     Active Substance: OXAZEPAM
     Route: 048
  16. OXAZEPAM [Concomitant]
     Active Substance: OXAZEPAM
  17. Paroxetine eg [Concomitant]
     Indication: Product used for unknown indication
     Dosage: 20 MILLIGRAM, Q36H (1.5 DAY, SCORED FILM-COATED TABLET)
  18. Paroxetine eg [Concomitant]
     Dosage: 20 MILLIGRAM, Q36H (1.5 DAY, SCORED FILM-COATED TABLET)
     Route: 048
  19. Paroxetine eg [Concomitant]
     Dosage: 20 MILLIGRAM, Q36H (1.5 DAY, SCORED FILM-COATED TABLET)
     Route: 048
  20. Paroxetine eg [Concomitant]
     Dosage: 20 MILLIGRAM, Q36H (1.5 DAY, SCORED FILM-COATED TABLET)
  21. Calcidose [Concomitant]
     Indication: Product used for unknown indication
     Dosage: 500 MILLIGRAM, BID (12 HOURS, POWDER FOR ORAL SUSPENSION IN SACHET)
  22. Calcidose [Concomitant]
     Dosage: 500 MILLIGRAM, BID (12 HOURS, POWDER FOR ORAL SUSPENSION IN SACHET)
     Route: 048
  23. Calcidose [Concomitant]
     Dosage: 500 MILLIGRAM, BID (12 HOURS, POWDER FOR ORAL SUSPENSION IN SACHET)
     Route: 048
  24. Calcidose [Concomitant]
     Dosage: 500 MILLIGRAM, BID (12 HOURS, POWDER FOR ORAL SUSPENSION IN SACHET)
  25. CHOLECALCIFEROL [Concomitant]
     Active Substance: CHOLECALCIFEROL
     Indication: Product used for unknown indication
     Dosage: 2 MILLILITER, MONTHLY (ORAL SOLUTION IN AMPOULE)
  26. CHOLECALCIFEROL [Concomitant]
     Active Substance: CHOLECALCIFEROL
     Dosage: 2 MILLILITER, MONTHLY (ORAL SOLUTION IN AMPOULE)
     Route: 048
  27. CHOLECALCIFEROL [Concomitant]
     Active Substance: CHOLECALCIFEROL
     Dosage: 2 MILLILITER, MONTHLY (ORAL SOLUTION IN AMPOULE)
     Route: 048
  28. CHOLECALCIFEROL [Concomitant]
     Active Substance: CHOLECALCIFEROL
     Dosage: 2 MILLILITER, MONTHLY (ORAL SOLUTION IN AMPOULE)

REACTIONS (1)
  - Atrial flutter [Recovered/Resolved]

NARRATIVE: CASE EVENT DATE: 20241112
